FAERS Safety Report 22386427 (Version 1)
Quarter: 2023Q2

REPORT INFORMATION
  Report Type: Spontaneous
  Country: JP (occurrence: JP)
  Receive Date: 20230531
  Receipt Date: 20230531
  Transmission Date: 20230722
  Serious: Yes (Other)
  Sender: FDA-Public Use
  Company Number: JP-Vifor (International) Inc.-VIT-2023-03811

PATIENT
  Age: 82 Year
  Sex: Male
  Weight: 76 kg

DRUGS (16)
  1. TAVNEOS [Suspect]
     Active Substance: AVACOPAN
     Indication: Vasculitis
     Dosage: 20 MILLIGRAM, QD
     Route: 048
     Dates: start: 20230206, end: 20230305
  2. TAVNEOS [Suspect]
     Active Substance: AVACOPAN
     Dosage: INCREASED
     Route: 048
     Dates: start: 20230306, end: 20230403
  3. TAVNEOS [Suspect]
     Active Substance: AVACOPAN
     Dosage: INCREASED
     Route: 048
     Dates: start: 20230404, end: 20230502
  4. ATORVASTATIN [Concomitant]
     Active Substance: ATORVASTATIN
     Route: 048
  5. ESOMEPRAZOLE MAGNESIUM [Concomitant]
     Active Substance: ESOMEPRAZOLE MAGNESIUM
     Route: 048
  6. AMLODIPINE BESYLATE\IRBESARTAN [Concomitant]
     Active Substance: AMLODIPINE BESYLATE\IRBESARTAN
     Route: 048
  7. BISOPROLOL FUMARATE [Concomitant]
     Active Substance: BISOPROLOL FUMARATE
     Route: 048
  8. MIRABEGRON [Concomitant]
     Active Substance: MIRABEGRON
     Route: 048
  9. MAGNESIUM OXIDE [Concomitant]
     Active Substance: MAGNESIUM OXIDE
     Route: 048
  10. SENNOSIDES [Concomitant]
     Active Substance: SENNOSIDES
     Route: 048
  11. ATOVAQUONE [Concomitant]
     Active Substance: ATOVAQUONE
     Dosage: LIQUID MEDICINE FOR INTERNAL USE
     Route: 048
  12. CALCIUM CARBONATE\CHOLECALCIFEROL\MAGNESIUM CARBONATE [Concomitant]
     Active Substance: CALCIUM CARBONATE\CHOLECALCIFEROL\MAGNESIUM CARBONATE
     Route: 048
  13. PREDONINE [Concomitant]
     Active Substance: PREDNISOLONE
     Route: 048
  14. LINAGLIPTIN [Concomitant]
     Active Substance: LINAGLIPTIN
     Route: 048
  15. VOGLIBOSE [Concomitant]
     Active Substance: VOGLIBOSE
     Route: 048
  16. Insulin lispro bs [Concomitant]
     Route: 048

REACTIONS (2)
  - Drug-induced liver injury [Recovered/Resolved]
  - Off label use [Unknown]

NARRATIVE: CASE EVENT DATE: 20230206
